FAERS Safety Report 9221707 (Version 1)
Quarter: 2013Q1

REPORT INFORMATION
  Report Type: Spontaneous
  Country: US (occurrence: US)
  Receive Date: 20120907
  Receipt Date: 20120907
  Transmission Date: 20140127
  Serious: Yes (Hospitalization, Other)
  Sender: FDA-Public Use
  Company Number: TH-2012-00216

PATIENT
  Sex: Male

DRUGS (3)
  1. EGRIFTA [Suspect]
     Indication: PRODUCT USED FOR UNKNOWN INDICATION
     Dates: start: 201201
  2. UNSPECIFIED MEDICATION [Concomitant]
  3. VICODIN (PARACETAMOL, HYDROCODONE BITARTRATE) [Concomitant]

REACTIONS (2)
  - Renal failure [None]
  - Pulmonary oedema [None]
